FAERS Safety Report 10485914 (Version 6)
Quarter: 2020Q3

REPORT INFORMATION
  Report Type: Spontaneous
  Country: NL (occurrence: NL)
  Receive Date: 20141001
  Receipt Date: 20200810
  Transmission Date: 20201102
  Serious: Yes (Death, Life-Threatening, Hospitalization, Other)
  Sender: FDA-Public Use
  Company Number: NL-AUROBINDO-AUR-APL-2014-10401

PATIENT
  Age: 77 Year
  Sex: Male

DRUGS (13)
  1. AMOXICILLIN. [Suspect]
     Active Substance: AMOXICILLIN
     Indication: BRAIN ABSCESS
     Dosage: 2 GRAM, (EVERY 4 HRS), (2 G, SIX TIMES DAILY, INTERVAL: 1) (12 GRAM, ONCE A DAY)
     Route: 042
  2. CEFTRIAXONE. [Suspect]
     Active Substance: CEFTRIAXONE
     Indication: BRAIN ABSCESS
  3. CEFTRIAXONE. [Suspect]
     Active Substance: CEFTRIAXONE
     Indication: CONFUSIONAL STATE
     Dosage: UNK
     Route: 065
  4. HYDROCORTISONE. [Concomitant]
     Active Substance: HYDROCORTISONE
     Indication: PRODUCT USED FOR UNKNOWN INDICATION
     Dosage: 300 MILLIGRAM, ONCE A DAY
     Route: 065
  5. VANCOMYCIN POWDER FOR CONCENTRATE FOR SOLUTION FOR INFUSION [Suspect]
     Active Substance: VANCOMYCIN HYDROCHLORIDE
     Indication: BRAIN ABSCESS
     Dosage: UNK
     Route: 042
  6. CEFTRIAXONE. [Suspect]
     Active Substance: CEFTRIAXONE
     Indication: HEADACHE
     Dosage: 2 GRAM, TWO TIMES A DAY, (INTERVAL: 1)
     Route: 042
  7. PENICILLIN [Suspect]
     Active Substance: PENICILLIN
     Indication: BRAIN ABSCESS
     Dosage: 12 MILLION INTERNATIONAL UNIT, ONCE A DAY
     Route: 042
  8. METRONIDAZOLE. [Suspect]
     Active Substance: METRONIDAZOLE
     Indication: BACTERIAL INFECTION
     Dosage: 500 MILLIGRAM, 3 TIMES A DAY
     Route: 042
  9. CLARITHROMYCIN 250 MG FILM?COATED TABLETS [Suspect]
     Active Substance: CLARITHROMYCIN
     Indication: BRAIN ABSCESS
     Dosage: 250 MILLIGRAM, TWO TIMES A DAY
     Route: 048
  10. CLARITHROMYCIN 250 MG FILM?COATED TABLETS [Suspect]
     Active Substance: CLARITHROMYCIN
     Indication: HEADACHE
     Dosage: 500 MILLIGRAM, ONCE A DAY
     Route: 048
  11. NOREPINEPHRINE. [Concomitant]
     Active Substance: NOREPINEPHRINE
     Indication: PRODUCT USED FOR UNKNOWN INDICATION
     Dosage: UNK
     Route: 065
  12. PENICILLIN [Suspect]
     Active Substance: PENICILLIN
     Indication: ERYTHEMA
  13. VANCOMYCIN POWDER FOR CONCENTRATE FOR SOLUTION FOR INFUSION [Suspect]
     Active Substance: VANCOMYCIN HYDROCHLORIDE
     Indication: STREPTOCOCCAL INFECTION
     Dosage: UNK
     Route: 041

REACTIONS (25)
  - C-reactive protein increased [Fatal]
  - Blood alkaline phosphatase increased [Fatal]
  - Dyspnoea [Fatal]
  - Blood lactate dehydrogenase increased [Fatal]
  - Heart rate increased [Fatal]
  - Urine output decreased [Fatal]
  - Disorientation [Fatal]
  - Renal failure [Fatal]
  - Haemoglobin decreased [Fatal]
  - Liver function test abnormal [Fatal]
  - Blood bilirubin increased [Fatal]
  - Diffuse alveolar damage [Fatal]
  - Alanine aminotransferase increased [Fatal]
  - Pyrexia [Fatal]
  - Respiratory failure [Fatal]
  - Haemodynamic instability [Fatal]
  - Drug reaction with eosinophilia and systemic symptoms [Fatal]
  - Acute hepatic failure [Fatal]
  - Pruritus [Fatal]
  - Acute kidney injury [Fatal]
  - Multiple organ dysfunction syndrome [Fatal]
  - Gamma-glutamyltransferase increased [Fatal]
  - Skin exfoliation [Fatal]
  - Prothrombin time prolonged [Fatal]
  - Blood creatinine increased [Fatal]
